FAERS Safety Report 14138718 (Version 1)
Quarter: 2017Q4

REPORT INFORMATION
  Report Type: Spontaneous
  Country: US (occurrence: US)
  Receive Date: 20171027
  Receipt Date: 20171027
  Transmission Date: 20180321
  Serious: No
  Sender: FDA-Public Use
  Company Number: US-009507513-1710USA006339

PATIENT
  Sex: Female

DRUGS (1)
  1. NEXPLANON [Suspect]
     Active Substance: ETONOGESTREL
     Dosage: UNK
     Route: 059
     Dates: start: 20141106

REACTIONS (5)
  - Hypoaesthesia [Unknown]
  - Menorrhagia [Unknown]
  - Pyrexia [Unknown]
  - Pain in extremity [Unknown]
  - Menstrual disorder [Unknown]
